FAERS Safety Report 8632249 (Version 3)
Quarter: 2013Q3

REPORT INFORMATION
  Report Type: Report from Study
  Country: JP (occurrence: JP)
  Receive Date: 20120625
  Receipt Date: 20130808
  Transmission Date: 20140515
  Serious: Yes (Death, Other)
  Sender: FDA-Public Use
  Company Number: JP-CELGENEUS-087-50794-12062993

PATIENT
  Age: 69 Year
  Sex: Female
  Weight: 74 kg

DRUGS (59)
  1. VIDAZA [Suspect]
     Indication: MYELODYSPLASTIC SYNDROME
     Dosage: 75 MILLIGRAM/SQ. METER
     Route: 041
     Dates: start: 20111008, end: 20111014
  2. VIDAZA [Suspect]
     Dosage: 37.5 MILLIGRAM/SQ. METER
     Route: 041
     Dates: start: 20111119, end: 20111125
  3. VIDAZA [Suspect]
     Dosage: 37.5 MILLIGRAM/SQ. METER
     Route: 041
     Dates: start: 20120112, end: 20120118
  4. VIDAZA [Suspect]
     Dosage: 37.5 MILLIGRAM/SQ. METER
     Route: 041
     Dates: start: 20120302, end: 20120308
  5. VIDAZA [Suspect]
     Dosage: 75 MILLIGRAM/SQ. METER
     Route: 041
     Dates: start: 20120330, end: 20120404
  6. TRAMAL [Concomitant]
     Indication: PRODUCT USED FOR UNKNOWN INDICATION
     Dosage: 25 MILLIGRAM
     Route: 065
     Dates: start: 20120429
  7. MAGMITT [Concomitant]
     Indication: PRODUCT USED FOR UNKNOWN INDICATION
     Route: 065
     Dates: start: 20120406
  8. SIGMART [Concomitant]
     Indication: PRODUCT USED FOR UNKNOWN INDICATION
     Route: 065
  9. EQUA [Concomitant]
     Indication: PRODUCT USED FOR UNKNOWN INDICATION
     Route: 065
  10. MICAMLO [Concomitant]
     Indication: PRODUCT USED FOR UNKNOWN INDICATION
     Route: 065
  11. ASTOMIN [Concomitant]
     Indication: PRODUCT USED FOR UNKNOWN INDICATION
     Route: 065
     Dates: end: 20120404
  12. ALLEGRA [Concomitant]
     Indication: PRODUCT USED FOR UNKNOWN INDICATION
     Route: 065
  13. MAXIPIME [Concomitant]
     Indication: PRODUCT USED FOR UNKNOWN INDICATION
     Route: 065
     Dates: start: 20111030, end: 20111107
  14. MAXIPIME [Concomitant]
     Route: 065
     Dates: start: 20120210, end: 20120217
  15. NEUTROGIN [Concomitant]
     Indication: PRODUCT USED FOR UNKNOWN INDICATION
     Route: 065
     Dates: start: 20111101, end: 20111108
  16. ITRIZOLE [Concomitant]
     Indication: PRODUCT USED FOR UNKNOWN INDICATION
     Route: 065
     Dates: start: 20111031, end: 20111129
  17. GENINAX [Concomitant]
     Indication: PRODUCT USED FOR UNKNOWN INDICATION
     Route: 065
     Dates: start: 20111123, end: 20111129
  18. CRAVIT [Concomitant]
     Indication: PRODUCT USED FOR UNKNOWN INDICATION
     Route: 065
     Dates: start: 20111222, end: 20111228
  19. CRAVIT [Concomitant]
     Route: 065
     Dates: start: 20120109, end: 20120127
  20. CRAVIT [Concomitant]
     Route: 065
     Dates: start: 20120411, end: 20120416
  21. MYSLEE [Concomitant]
     Indication: PRODUCT USED FOR UNKNOWN INDICATION
     Route: 065
     Dates: start: 20111108
  22. NASEA-OD [Concomitant]
     Indication: PRODUCT USED FOR UNKNOWN INDICATION
     Route: 065
     Dates: start: 20111008, end: 20111014
  23. NASEA-OD [Concomitant]
     Route: 065
     Dates: start: 20111119, end: 20111125
  24. NASEA-OD [Concomitant]
     Route: 065
     Dates: start: 20120112, end: 20120118
  25. NASEA-OD [Concomitant]
     Route: 065
     Dates: start: 20120302, end: 20120308
  26. NASEA-OD [Concomitant]
     Route: 065
     Dates: start: 20120330, end: 20120404
  27. KETEK [Concomitant]
     Indication: PRODUCT USED FOR UNKNOWN INDICATION
     Route: 065
     Dates: start: 20120124, end: 20120128
  28. CALONAL [Concomitant]
     Indication: PRODUCT USED FOR UNKNOWN INDICATION
     Route: 065
     Dates: start: 20120224
  29. PARIET [Concomitant]
     Indication: PRODUCT USED FOR UNKNOWN INDICATION
     Route: 065
     Dates: start: 20120319
  30. DIFLUCAN [Concomitant]
     Indication: PRODUCT USED FOR UNKNOWN INDICATION
     Route: 065
     Dates: start: 20120322, end: 20120405
  31. SLOW-K [Concomitant]
     Indication: PRODUCT USED FOR UNKNOWN INDICATION
     Route: 065
     Dates: start: 20120330
  32. CODEINE PHOSPHATE HYDRATE [Concomitant]
     Indication: PRODUCT USED FOR UNKNOWN INDICATION
     Route: 065
     Dates: start: 20120403
  33. MUCOSOLVAN [Concomitant]
     Indication: PRODUCT USED FOR UNKNOWN INDICATION
     Route: 065
     Dates: start: 20120405
  34. ADONA [Concomitant]
     Indication: PRODUCT USED FOR UNKNOWN INDICATION
     Route: 065
     Dates: start: 20120421
  35. VFEND [Concomitant]
     Indication: PRODUCT USED FOR UNKNOWN INDICATION
     Route: 065
     Dates: start: 20120429, end: 20120429
  36. VFEND [Concomitant]
     Route: 065
     Dates: start: 20120430
  37. FUNGARD [Concomitant]
     Indication: PRODUCT USED FOR UNKNOWN INDICATION
     Route: 065
     Dates: start: 20120213, end: 20120307
  38. FUNGARD [Concomitant]
     Route: 065
     Dates: start: 20120404, end: 20120428
  39. MEROPEN [Concomitant]
     Indication: PRODUCT USED FOR UNKNOWN INDICATION
     Route: 065
     Dates: start: 20120219, end: 20120303
  40. MEROPEN [Concomitant]
     Route: 065
     Dates: start: 20120403, end: 20120411
  41. MEROPEN [Concomitant]
     Route: 065
     Dates: start: 20120428, end: 20120506
  42. VANCOMYCIN [Concomitant]
     Indication: PRODUCT USED FOR UNKNOWN INDICATION
     Route: 065
     Dates: start: 20120225, end: 20120302
  43. VANCOMYCIN [Concomitant]
     Route: 065
     Dates: start: 20120318, end: 20120411
  44. KYTRIL [Concomitant]
     Indication: PRODUCT USED FOR UNKNOWN INDICATION
     Route: 065
     Dates: start: 20120304, end: 20120311
  45. KYTRIL [Concomitant]
     Route: 065
     Dates: start: 20120316, end: 20120403
  46. VENOGLOBULIN [Concomitant]
     Indication: PRODUCT USED FOR UNKNOWN INDICATION
     Route: 065
     Dates: start: 20120407, end: 20120409
  47. ZOSYN [Concomitant]
     Indication: PRODUCT USED FOR UNKNOWN INDICATION
     Route: 065
     Dates: start: 20120411, end: 20120423
  48. WYSTAL [Concomitant]
     Indication: PRODUCT USED FOR UNKNOWN INDICATION
     Route: 065
     Dates: start: 20120304, end: 20120311
  49. WYSTAL [Concomitant]
     Route: 065
     Dates: start: 20120316, end: 20120403
  50. WYSTAL [Concomitant]
     Route: 065
     Dates: start: 20120423, end: 20120428
  51. HABEKACIN [Concomitant]
     Indication: PRODUCT USED FOR UNKNOWN INDICATION
     Route: 065
     Dates: start: 20120424, end: 20120428
  52. TEICOPLANIN [Concomitant]
     Indication: PRODUCT USED FOR UNKNOWN INDICATION
     Route: 065
     Dates: start: 20120428, end: 20120506
  53. ITRACONAZOLE [Concomitant]
     Indication: PHARYNGITIS
     Route: 065
     Dates: start: 2011
  54. CEFEPIME DIHYDROCHLORIDE HYDRATE [Concomitant]
     Indication: PHARYNGITIS
     Route: 065
     Dates: start: 2011
  55. GARENOXACIN MESILATE HYDRATE [Concomitant]
     Indication: PYREXIA
     Route: 065
  56. RBC TRANSFUSION [Concomitant]
     Indication: PRODUCT USED FOR UNKNOWN INDICATION
     Route: 041
  57. PLATELET TRANSFUSION [Concomitant]
     Indication: PRODUCT USED FOR UNKNOWN INDICATION
     Route: 041
  58. GRAN [Concomitant]
     Indication: PRODUCT USED FOR UNKNOWN INDICATION
     Route: 065
     Dates: start: 20120406, end: 20120412
  59. GRAN [Concomitant]
     Route: 065
     Dates: start: 20120416, end: 20120506

REACTIONS (3)
  - Pneumonia [Fatal]
  - Myelodysplastic syndrome [Fatal]
  - Febrile neutropenia [Recovered/Resolved]
